FAERS Safety Report 22318670 (Version 1)
Quarter: 2023Q2

REPORT INFORMATION
  Report Type: Spontaneous
  Country: HR (occurrence: HR)
  Receive Date: 20230515
  Receipt Date: 20230515
  Transmission Date: 20230721
  Serious: Yes (Hospitalization)
  Sender: FDA-Public Use
  Company Number: HR-CELLTRION HEALTHCARE HUNGARY KFT-2023HR009050

PATIENT
  Age: 50 Year
  Sex: Male

DRUGS (3)
  1. CAPECITABINE [Suspect]
     Active Substance: CAPECITABINE
     Indication: Adenocarcinoma gastric
     Dosage: FIRST-LINE TREATMENT
     Dates: start: 202006
  2. CISPLATIN [Suspect]
     Active Substance: CISPLATIN
     Indication: Adenocarcinoma gastric
     Dosage: FIRST-LINE TREATMENT
     Dates: start: 202006
  3. TRASTUZUMAB [Suspect]
     Active Substance: TRASTUZUMAB
     Indication: Adenocarcinoma gastric
     Dosage: FIRST-LINE TREATMENT
     Dates: start: 202006

REACTIONS (5)
  - General physical health deterioration [Unknown]
  - Vomiting [Unknown]
  - Weight decreased [Recovered/Resolved]
  - Dysphagia [Recovered/Resolved]
  - Pneumonia [Unknown]
